FAERS Safety Report 11088604 (Version 1)
Quarter: 2015Q2

REPORT INFORMATION
  Report Type: Spontaneous
  Country: US (occurrence: US)
  Receive Date: 20150504
  Receipt Date: 20150504
  Transmission Date: 20150821
  Serious: Yes (Hospitalization, Other)
  Sender: FDA-Public Use
  Company Number: US-GLAXOSMITHKLINE-US2015GSK059405

PATIENT
  Sex: Female
  Weight: 63 kg

DRUGS (10)
  1. LATANOPROST. [Concomitant]
     Active Substance: LATANOPROST
  2. XARELTO [Concomitant]
     Active Substance: RIVAROXABAN
  3. DIGOXIN. [Concomitant]
     Active Substance: DIGOXIN
  4. HYDROCODONE [Concomitant]
     Active Substance: HYDROCODONE
  5. CEFDINIR. [Concomitant]
     Active Substance: CEFDINIR
  6. AMIODARONE [Concomitant]
     Active Substance: AMIODARONE
  7. TYKERB [Suspect]
     Active Substance: LAPATINIB DITOSYLATE
     Indication: BREAST CANCER
     Dosage: 1250 MG, QD
     Route: 048
     Dates: start: 20150314
  8. TORSEMIDE. [Concomitant]
     Active Substance: TORSEMIDE
  9. NORVASC [Concomitant]
     Active Substance: AMLODIPINE BESYLATE
  10. TEKTURNA [Concomitant]
     Active Substance: ALISKIREN HEMIFUMARATE

REACTIONS (1)
  - Hospitalisation [Unknown]
